FAERS Safety Report 8008062-X (Version None)
Quarter: 2011Q4

REPORT INFORMATION
  Report Type: 
  Country: None (occurrence: None)
  Receive Date: 20111227
  Receipt Date: 20111220
  Transmission Date: 20120403
  Serious: Yes (Other)
  Sender: FDA-Public Use
  Company Number: PHEH2011US010860

PATIENT
  Sex: Female

DRUGS (21)
  1. SIMAVASTATIN [Concomitant]
     Dosage: UNK UKN, UNK
  2. LORAZEPAM [Concomitant]
     Dosage: UNK UKN, UNK
  3. NITROFURANTOIN [Concomitant]
     Dosage: UNK UKN, UNK
  4. GILENYA [Suspect]
     Dosage: 0.5 MG, QD
     Route: 048
     Dates: start: 20111121
  5. FUROSEMIDE [Concomitant]
     Dosage: UNK UKN, UNK
  6. LORATADINE [Concomitant]
     Dosage: UNK UKN, UNK
  7. REQUIP [Concomitant]
     Dosage: UNK UKN, UNK
  8. MELATONIN [Concomitant]
     Dosage: UNK UKN, UNK
  9. GILENYA [Suspect]
     Indication: RELAPSING-REMITTING MULTIPLE SCLEROSIS
     Dosage: 0.5 MG, QD
     Route: 048
     Dates: start: 20111118
  10. SERTRALINE HYDROCHLORIDE [Concomitant]
     Dosage: UNK UKN, UNK
  11. LAMOTRIGINE [Concomitant]
     Dosage: UNK UKN, UNK
  12. METOPROLOL SUCCINATE [Concomitant]
     Dosage: UNK UKN, UNK
  13. OMEPRAZOLE [Concomitant]
     Dosage: UNK UKN, UNK
  14. POTASSIUM [Concomitant]
     Dosage: UNK UKN, UNK
  15. SEROQUEL [Concomitant]
     Dosage: UNK UKN, UNK
  16. MELOXICAM [Concomitant]
     Dosage: UNK UKN, UNK
  17. MECLIZINE [Concomitant]
     Dosage: UNK UKN, UNK
  18. SENNA-S (DOCUSATE SODIUM/SENNOSIDES) [Concomitant]
     Dosage: UNK UKN, UNK
  19. LEVOTHYROXINE SODIUM [Concomitant]
     Dosage: UNK UKN, UNK
  20. VITAMIN D [Concomitant]
     Dosage: UNK UKN, UNK
  21. TOPAMAX [Concomitant]
     Dosage: UNK UKN, UNK

REACTIONS (14)
  - DYSPNOEA [None]
  - DIPLOPIA [None]
  - OROPHARYNGEAL PAIN [None]
  - DYSARTHRIA [None]
  - DYSURIA [None]
  - VISUAL IMPAIRMENT [None]
  - VISION BLURRED [None]
  - FACIAL ASYMMETRY [None]
  - PHOTOPHOBIA [None]
  - CHROMATURIA [None]
  - EYE IRRITATION [None]
  - HYPOAESTHESIA [None]
  - HEADACHE [None]
  - PARAESTHESIA [None]
